FAERS Safety Report 5613947-5 (Version None)
Quarter: 2008Q1

REPORT INFORMATION
  Report Type: 
  Country: None (occurrence: None)
  Receive Date: 20080129
  Receipt Date: 20080121
  Transmission Date: 20080703
  Serious: Yes (Hospitalization)
  Sender: FDA-Public Use
  Company Number: 2008PV000004

PATIENT
  Age: 19 Year
  Sex: Male
  Weight: 55 kg

DRUGS (2)
  1. CYTARABINE [Suspect]
     Indication: PROPHYLAXIS
     Dosage: 50 MG; QM; INTH
     Route: 037
     Dates: end: 20070521
  2. METHYLPREDNISOLONE [Concomitant]

REACTIONS (3)
  - FAECAL INCONTINENCE [None]
  - PARAESTHESIA [None]
  - URINARY INCONTINENCE [None]
